FAERS Safety Report 8138373-9 (Version None)
Quarter: 2012Q1

REPORT INFORMATION
  Report Type: 
  Country: None (occurrence: None)
  Receive Date: 20120213
  Receipt Date: 20120130
  Transmission Date: 20120608
  Serious: Yes (Hospitalization, Other)
  Sender: FDA-Public Use
  Company Number: WAES 1107USA01076

PATIENT
  Age: 56 Year
  Sex: Male

DRUGS (6)
  1. PLACEBO [Suspect]
     Indication: ACUTE CORONARY SYNDROME
     Dosage: PO
     Route: 048
     Dates: start: 20080320
  2. METOPROLOL TARTRATE [Concomitant]
  3. PLACEBO [Suspect]
     Indication: ACUTE CORONARY SYNDROME
     Dosage: PO
     Route: 048
     Dates: start: 20080320
  4. VYTORIN [Suspect]
     Indication: ACUTE CORONARY SYNDROME
     Dosage: 10-40 MG/DAILY PO
     Route: 048
     Dates: start: 20080320
  5. PANTOPRAZOLE [Concomitant]
  6. ASPIRIN [Concomitant]

REACTIONS (5)
  - MYELODYSPLASTIC SYNDROME [None]
  - HAEMOGLOBIN DECREASED [None]
  - SUBCUTANEOUS ABSCESS [None]
  - ABSCESS NECK [None]
  - HAEMATOCRIT DECREASED [None]
